FAERS Safety Report 5981956-2 (Version None)
Quarter: 2008Q4

REPORT INFORMATION
  Report Type: 
  Country: None (occurrence: None)
  Receive Date: 20081202
  Receipt Date: 20081117
  Transmission Date: 20090506
  Serious: Yes (Hospitalization)
  Sender: FDA-Public Use
  Company Number: KV200800291

PATIENT
  Sex: Female

DRUGS (6)
  1. ISOSORBIDE MONONITRATE [Suspect]
     Indication: ANGINA PECTORIS
     Dosage: 30 MG, QD, ORAL
     Route: 048
     Dates: start: 20050101
  2. LIPITOR [Concomitant]
  3. COREG [Concomitant]
  4. PLAVIX [Concomitant]
  5. ZETIA [Concomitant]
  6. RAMIPRIL [Concomitant]

REACTIONS (5)
  - FALL [None]
  - HEAD INJURY [None]
  - HYPOTENSION [None]
  - LOSS OF CONSCIOUSNESS [None]
  - PRODUCT QUALITY ISSUE [None]
